FAERS Safety Report 23912582 (Version 1)
Quarter: 2024Q2

REPORT INFORMATION
  Report Type: Spontaneous
  Country: PT (occurrence: PT)
  Receive Date: 20240528
  Receipt Date: 20240528
  Transmission Date: 20240716
  Serious: Yes (Hospitalization, Other)
  Sender: FDA-Public Use
  Company Number: PT-NOVITIUMPHARMA-2024PTNVP00936

PATIENT
  Age: 75 Year
  Sex: Male

DRUGS (4)
  1. LIDOCAINE HYDROCHLORIDE [Suspect]
     Active Substance: LIDOCAINE HYDROCHLORIDE
     Indication: Epidural analgesia
  2. ROPIVACAINE [Concomitant]
     Active Substance: ROPIVACAINE
     Indication: Epidural analgesia
     Route: 040
  3. ROPIVACAINE [Concomitant]
     Active Substance: ROPIVACAINE
  4. SUFENTANIL [Concomitant]
     Active Substance: SUFENTANIL
     Indication: Epidural analgesia

REACTIONS (1)
  - Paralysis [Unknown]
